FAERS Safety Report 16908772 (Version 1)
Quarter: 2019Q4

REPORT INFORMATION
  Report Type: Spontaneous
  Country: US (occurrence: US)
  Receive Date: 20190820
  Receipt Date: 20190820
  Transmission Date: 20200122
  Serious: No
  Sender: FDA-Public Use
  Company Number: None

PATIENT
  Age: 53 Year
  Sex: Female

DRUGS (1)
  1. MULTIHANCE [Suspect]
     Active Substance: GADOBENATE DIMEGLUMINE

REACTIONS (19)
  - Vomiting [None]
  - Skin irritation [None]
  - Skin burning sensation [None]
  - Temperature intolerance [None]
  - Secretion discharge [None]
  - Thirst [None]
  - Arthralgia [None]
  - Amnesia [None]
  - Disorientation [None]
  - Hyperhidrosis [None]
  - Hyperaesthesia [None]
  - Documented hypersensitivity to administered product [None]
  - Headache [None]
  - Skin exfoliation [None]
  - Visual impairment [None]
  - Skin hypertrophy [None]
  - Rash [None]
  - Disturbance in attention [None]
  - Dyskinesia [None]

NARRATIVE: CASE EVENT DATE: 20190518
